FAERS Safety Report 4773079-5 (Version None)
Quarter: 2005Q3

REPORT INFORMATION
  Report Type: 
  Country: None (occurrence: None)
  Receive Date: 20050919
  Receipt Date: 20050907
  Transmission Date: 20060218
  Serious: Yes (Hospitalization)
  Sender: FDA-Public Use
  Company Number: US-BRISTOL-MYERS SQUIBB COMPANY-13102017

PATIENT
  Age: 64 Year
  Sex: Male
  Weight: 65 kg

DRUGS (4)
  1. CISPLATIN [Suspect]
     Indication: SQUAMOUS CELL CARCINOMA
     Route: 042
     Dates: start: 20010702, end: 20010702
  2. CETUXIMAB [Suspect]
     Indication: SQUAMOUS CELL CARCINOMA
     Dosage: 700MG 02-JUL-2001; 450MG 10-JUL-2001, 17-JUL-2001, 23-OCT-2001, 30-OCT-2001, AND 06-NOV-2001
     Route: 042
     Dates: start: 20010702, end: 20011106
  3. PROCRIT [Concomitant]
     Dosage: DOSE UNITS = UNITS
     Route: 042
     Dates: start: 20011002, end: 20011002
  4. KYTRIL [Concomitant]
     Dates: start: 20011016, end: 20011016

REACTIONS (6)
  - CYSTITIS [None]
  - ILEUS [None]
  - MALIGNANT NEOPLASM PROGRESSION [None]
  - NEOPLASM PROSTATE [None]
  - SQUAMOUS CELL CARCINOMA [None]
  - URINARY RETENTION [None]
